FAERS Safety Report 19502189 (Version 3)
Quarter: 2021Q3

REPORT INFORMATION
  Report Type: Report from Study
  Country: CN (occurrence: CN)
  Receive Date: 20210707
  Receipt Date: 20210907
  Transmission Date: 20211014
  Serious: Yes (Hospitalization)
  Sender: FDA-Public Use
  Company Number: CN-G1-000313

PATIENT
  Age: 61 Year
  Sex: Male
  Weight: 70 kg

DRUGS (10)
  1. 1745569 (GLOBALC3SEP20): LEVAMLODIPINE BESYLATE [Concomitant]
     Indication: HYPERTENSION
     Route: 048
     Dates: start: 20201106
  2. 1766825 (GLOBALC3SEP20): TROPISETRON HYDROCHLORIDE [Concomitant]
     Indication: PROPHYLAXIS
     Route: 041
     Dates: start: 20210609, end: 20210609
  3. TRILACICLIB [Suspect]
     Active Substance: TRILACICLIB
     Indication: SMALL CELL LUNG CANCER EXTENSIVE STAGE
     Route: 041
     Dates: start: 20210604, end: 20210608
  4. 1731169 (GLOBALC3SEP20): BUCINNAZINE HYDROCHLORIDE [Concomitant]
     Indication: PAIN
     Dosage: TIME INTERVAL: TOTAL
     Route: 030
     Dates: start: 20210602, end: 20210602
  5. 1400866 (GLOBALC3SEP20): DEXAMETHASONE [Concomitant]
     Indication: PROPHYLAXIS
     Dosage: 10 MG, QD
     Route: 041
     Dates: start: 20210609, end: 20210609
  6. 1402546 (GLOBALC3SEP20): OXYCONTIN [Concomitant]
     Indication: PAIN
     Route: 048
     Dates: start: 20210602
  7. 1755671 (GLOBALC3SEP20): TELMISARTAN [Concomitant]
     Indication: HYPERTENSION
     Route: 048
     Dates: start: 20201106
  8. TOPOTECAN [Suspect]
     Active Substance: TOPOTECAN HYDROCHLORIDE
     Indication: SMALL CELL LUNG CANCER EXTENSIVE STAGE
     Route: 041
     Dates: start: 20210604, end: 20210608
  9. 1400866 (GLOBALC3SEP20): DEXAMETHASONE [Concomitant]
     Indication: PROPHYLAXIS
     Dosage: 10 MG, QD
     Route: 041
     Dates: start: 20210604, end: 20210604
  10. 1766825 (GLOBALC3SEP20): TROPISETRON HYDROCHLORIDE [Concomitant]
     Indication: PROPHYLAXIS
     Route: 041
     Dates: start: 20210604, end: 20210608

REACTIONS (1)
  - Platelet count decreased [Recovering/Resolving]

NARRATIVE: CASE EVENT DATE: 20210613
